FAERS Safety Report 8596053-X (Version None)
Quarter: 2012Q3

REPORT INFORMATION
  Report Type: 
  Country: None (occurrence: None)
  Receive Date: 20120807
  Receipt Date: 20120807
  Transmission Date: 20120928
  Serious: Yes (Disabling)
  Sender: FDA-Public Use
  Company Number: None

PATIENT
  Sex: Female
  Weight: 86.1834 kg

DRUGS (2)
  1. ALENDRONATE SODIUM [Suspect]
     Indication: BONE DISORDER
     Dosage: 1 A WEEK
     Dates: start: 20080601, end: 20120601
  2. FOSAMAX [Suspect]
     Indication: BONE DISORDER
     Dosage: 1 A WEEK
     Dates: start: 19900101, end: 20080601

REACTIONS (3)
  - IMPAIRED HEALING [None]
  - OSTEONECROSIS OF JAW [None]
  - LOOSE TOOTH [None]
